FAERS Safety Report 22211408 (Version 1)
Quarter: 2023Q2

REPORT INFORMATION
  Report Type: Spontaneous
  Country: US (occurrence: None)
  Receive Date: 20230413
  Receipt Date: 20230413
  Transmission Date: 20230722
  Serious: Yes (Hospitalization, Other)
  Sender: FDA-Public Use
  Company Number: None

PATIENT
  Age: 69 Year
  Sex: Female
  Weight: 82.8 kg

DRUGS (1)
  1. OZEMPIC [Suspect]
     Active Substance: SEMAGLUTIDE
     Indication: Glycosylated haemoglobin increased
     Dosage: OTHER QUANTITY : 1 INJECTION(S)?OTHER FREQUENCY : ONCE PER WEEK?OTHER ROUTE : INJECT IN ABDOMEN?
     Route: 050
     Dates: start: 20221206, end: 20230131

REACTIONS (7)
  - Constipation [None]
  - Nausea [None]
  - Vomiting [None]
  - Pain [None]
  - Arrhythmia [None]
  - Cardiac disorder [None]
  - Blood pressure systolic decreased [None]

NARRATIVE: CASE EVENT DATE: 20221206
